FAERS Safety Report 8522835-6 (Version None)
Quarter: 2012Q3

REPORT INFORMATION
  Report Type: 
  Country: None (occurrence: None)
  Receive Date: 20120720
  Receipt Date: 20120709
  Transmission Date: 20120928
  Serious: Yes (Death)
  Sender: FDA-Public Use
  Company Number: GB-AMGEN-GBRSP2012043613

PATIENT
  Age: 58 Year
  Sex: Male

DRUGS (4)
  1. LANSOPRAZOLE [Concomitant]
     Dosage: UNK
     Route: 048
  2. ENBREL [Suspect]
     Indication: RHEUMATOID ARTHRITIS
     Dosage: 50 MG, UNK
     Route: 058
     Dates: start: 20031201, end: 20120101
  3. PREDNISOLONE [Concomitant]
     Dosage: 30 MG, UNK
     Route: 048
  4. ACETAMINOPHEN AND CODEINE PHOSPHATE [Concomitant]
     Dosage: 2 DF, UNK
     Route: 048

REACTIONS (1)
  - LUNG ADENOCARCINOMA [None]
